FAERS Safety Report 24079446 (Version 1)
Quarter: 2024Q3

REPORT INFORMATION
  Report Type: Spontaneous
  Country: US (occurrence: US)
  Receive Date: 20240711
  Receipt Date: 20240711
  Transmission Date: 20241017
  Serious: Yes (Other)
  Sender: NOBELPHARMA
  Company Number: US-NPC-NPA-2024-01159

PATIENT
  Age: 21 Year
  Sex: Male

DRUGS (8)
  1. HYFTOR [Suspect]
     Active Substance: SIROLIMUS
     Indication: Acariasis
     Dosage: APPLY TO THE AFFECTED AREA TOPICALLY (400 MG) TO THE FACE TWICE DAILY
     Dates: start: 20240510
  2. CLARITIN [Concomitant]
     Active Substance: LORATADINE
     Dosage: 5MG/5ML
  3. D3 Super STR [Concomitant]
     Dosage: SUPER STRENGTH CAPSULE
  4. IBUPROFEN [Concomitant]
     Active Substance: IBUPROFEN
  5. MIRALAX [Concomitant]
     Active Substance: POLYETHYLENE GLYCOL 3350
     Dosage: 3350 NF
  6. SENNA [Concomitant]
     Active Substance: SENNA LEAF\SENNOSIDES\SENNOSIDES A AND B
  7. TYLENOL [Concomitant]
     Active Substance: ACETAMINOPHEN
  8. VALPROIC ACID [Concomitant]
     Active Substance: VALPROIC ACID

REACTIONS (3)
  - Seizure [Recovered/Resolved]
  - Product dose omission issue [Unknown]
  - Off label use [Unknown]

NARRATIVE: CASE EVENT DATE: 20240601
